FAERS Safety Report 13665931 (Version 1)
Quarter: 2017Q2

REPORT INFORMATION
  Report Type: Spontaneous
  Country: RO (occurrence: RO)
  Receive Date: 20170619
  Receipt Date: 20170619
  Transmission Date: 20170830
  Serious: Yes (Other)
  Sender: FDA-Public Use
  Company Number: PHHY2017RO090031

PATIENT
  Age: 60 Year
  Sex: Male

DRUGS (3)
  1. SUNITINIB [Suspect]
     Active Substance: SUNITINIB
     Dosage: 37.5 MG, QD (4 WEEKS ON, 2 WEEKS OFF)
     Route: 048
  2. SUNITINIB [Suspect]
     Active Substance: SUNITINIB
     Indication: METASTATIC RENAL CELL CARCINOMA
     Dosage: 50 MG, QD (4 WEEKS ON/2 WEEKS OFF)
     Route: 048
     Dates: start: 201303
  3. ZOLEDRONATE [Suspect]
     Active Substance: ZOLEDRONIC ACID
     Indication: METASTASES TO BONE
     Dosage: 4 MG, QMO
     Route: 065

REACTIONS (11)
  - Eye swelling [Unknown]
  - Metastases to pleura [Unknown]
  - Dry skin [Unknown]
  - Metastases to lung [Unknown]
  - Yellow skin [Unknown]
  - Fatigue [Unknown]
  - Neurotoxicity [Unknown]
  - Malignant neoplasm progression [Unknown]
  - Drug resistance [Unknown]
  - Oedema [Not Recovered/Not Resolved]
  - Hypertension [Unknown]

NARRATIVE: CASE EVENT DATE: 2014
